FAERS Safety Report 10055097 (Version 1)
Quarter: 2014Q2

REPORT INFORMATION
  Report Type: Spontaneous
  Country: US (occurrence: US)
  Receive Date: 20140402
  Receipt Date: 20140402
  Transmission Date: 20141212
  Serious: No
  Sender: FDA-Public Use
  Company Number: US-SA-2014SA009278

PATIENT
  Age: 66 Year
  Sex: Female
  Weight: 65 kg

DRUGS (12)
  1. AUBAGIO [Suspect]
     Indication: MULTIPLE SCLEROSIS
     Route: 065
  2. AMPYRA [Suspect]
     Indication: GAIT DISTURBANCE
     Dosage: START DATE REPORTED AS 2006 OR 2007 AND AS OCT 12
     Route: 048
  3. AMPYRA [Suspect]
     Indication: GAIT DISTURBANCE
     Dosage: START DATE REPORTED AS 2006 OR 2007 AND AS OCT 12
     Route: 048
  4. AVONEX [Suspect]
     Indication: MULTIPLE SCLEROSIS
     Route: 030
     Dates: start: 2006
  5. NUVIGIL [Concomitant]
  6. KEPPRA [Concomitant]
  7. TIZANIDINE [Concomitant]
  8. VITAMIN D [Concomitant]
  9. EVISTA [Concomitant]
  10. TRAMADOL [Concomitant]
  11. PROVIGIL [Concomitant]
  12. LIPITOR [Concomitant]

REACTIONS (2)
  - Influenza like illness [Not Recovered/Not Resolved]
  - Pain in extremity [Unknown]
